FAERS Safety Report 5912323-5 (Version None)
Quarter: 2008Q4

REPORT INFORMATION
  Report Type: 
  Country: None (occurrence: None)
  Receive Date: 20081008
  Receipt Date: 20081001
  Transmission Date: 20090506
  Serious: Yes (Other)
  Sender: FDA-Public Use
  Company Number: JP-MERCK-0810USA00581

PATIENT
  Age: 73 Year
  Sex: Female

DRUGS (5)
  1. STROMECTOL [Suspect]
     Indication: ACARODERMATITIS
     Route: 048
     Dates: start: 20080901, end: 20080901
  2. STROMECTOL [Suspect]
     Route: 048
     Dates: start: 20080908, end: 20080908
  3. ELENTAL [Concomitant]
     Route: 041
  4. HYDANTOL [Concomitant]
     Route: 048
  5. [THERAPY UNSPECIFIED] [Concomitant]
     Route: 061

REACTIONS (1)
  - BLOOD PRESSURE INCREASED [None]
